FAERS Safety Report 22328465 (Version 2)
Quarter: 2025Q3

REPORT INFORMATION
  Report Type: Spontaneous
  Country: US (occurrence: US)
  Receive Date: 20230517
  Receipt Date: 20250703
  Transmission Date: 20251020
  Serious: No
  Sender: RADIUS PHARM
  Company Number: US-RADIUS HEALTH INC.-2022US005911

PATIENT
  Age: 75 Year
  Sex: Female
  Weight: 51.701 kg

DRUGS (1)
  1. TYMLOS [Suspect]
     Active Substance: ABALOPARATIDE
     Indication: Senile osteoporosis
     Route: 058
     Dates: start: 20220901

REACTIONS (5)
  - Abdominal pain upper [Unknown]
  - Influenza [Unknown]
  - Weight decreased [Unknown]
  - Weight gain poor [Unknown]
  - Gastrointestinal disorder [Unknown]

NARRATIVE: CASE EVENT DATE: 20220901
